FAERS Safety Report 6295264-6 (Version None)
Quarter: 2009Q3

REPORT INFORMATION
  Report Type: 
  Country: None (occurrence: None)
  Receive Date: 20090730
  Receipt Date: 20090717
  Transmission Date: 20100115
  Serious: Yes (Life-Threatening)
  Sender: FDA-Public Use
  Company Number: FRVA20090021

PATIENT
  Age: 30 Year
  Sex: Female

DRUGS (1)
  1. FROTAN (FROVATRIPTAN) [Suspect]
     Indication: MIGRAINE
     Dosage: 2.5 MG, PRN, ORAL; 5 MG, PRN, ORAL
     Route: 048
     Dates: start: 20080101, end: 20090501

REACTIONS (1)
  - ANGIOEDEMA [None]
